FAERS Safety Report 6411178-2 (Version None)
Quarter: 2009Q4

REPORT INFORMATION
  Report Type: 
  Country: None (occurrence: None)
  Receive Date: 20091022
  Receipt Date: 20091013
  Transmission Date: 20100525
  Serious: Yes (Death)
  Sender: FDA-Public Use
  Company Number: PH-PFIZER INC-2009269373

PATIENT
  Age: 33 Year

DRUGS (3)
  1. NEURONTIN [Suspect]
     Indication: PAIN
     Dosage: UNK
     Dates: start: 20090701
  2. MORPHINE [Concomitant]
     Indication: PAIN
     Dosage: UNK
  3. CENTRUM [Concomitant]
     Dosage: UNK

REACTIONS (1)
  - MALIGNANT NEOPLASM PROGRESSION [None]
